FAERS Safety Report 16640840 (Version 1)
Quarter: 2019Q3

REPORT INFORMATION
  Report Type: Other
  Country: DE (occurrence: DE)
  Receive Date: 20190729
  Receipt Date: 20190729
  Transmission Date: 20191004
  Serious: Yes (Congenital Anomaly, Other)
  Sender: FDA-Public Use
  Company Number: DE-LUPIN PHARMACEUTICALS INC.-2019-04702

PATIENT
  Age: 1 Day
  Sex: Female
  Weight: 2.52 kg

DRUGS (6)
  1. PASCOFLAIR [PASSIFLORA INCARNATA] [Concomitant]
     Indication: RESTLESSNESS
     Dosage: UNK
     Route: 064
  2. DIAZEPAM. [Concomitant]
     Active Substance: DIAZEPAM
     Indication: ANXIETY DISORDER
     Dosage: 2 MILLIGRAM, QD
     Route: 064
     Dates: start: 20180129, end: 20180129
  3. BUDESONIDE. [Concomitant]
     Active Substance: BUDESONIDE
     Indication: ASTHMA
     Dosage: UNK, (0-38 GESTATIONAL WEEK)
     Route: 064
     Dates: start: 20171222, end: 20180914
  4. SERTRALINE [Suspect]
     Active Substance: SERTRALINE HYDROCHLORIDE
     Indication: ANXIETY DISORDER
     Dosage: 75 MILLIGRAM, QD, (50 MG TWICE A DAY), 4.5 - 38 GESTATIONAL WEEK
     Route: 064
     Dates: start: 20180124, end: 20180914
  5. LORAZEPAM. [Concomitant]
     Active Substance: LORAZEPAM
     Indication: ANXIETY DISORDER
     Dosage: 0.5 MILLIGRAM, QD, IF NECESSARY
     Route: 064
     Dates: start: 20180124, end: 20180128
  6. LASEA [Concomitant]
     Indication: ANXIETY DISORDER
     Dosage: UNK
     Route: 064

REACTIONS (2)
  - Polydactyly [Not Recovered/Not Resolved]
  - Foetal exposure during pregnancy [Unknown]

NARRATIVE: CASE EVENT DATE: 20180914
